FAERS Safety Report 15465704 (Version 1)
Quarter: 2018Q4

REPORT INFORMATION
  Report Type: Spontaneous
  Country: NG (occurrence: NG)
  Receive Date: 20181004
  Receipt Date: 20181004
  Transmission Date: 20190204
  Serious: Yes (Hospitalization)
  Sender: FDA-Public Use
  Company Number: NG-IMPAX LABORATORIES, INC-2018-IPXL-03198

PATIENT
  Age: 12 Year
  Sex: Male

DRUGS (3)
  1. CHLOROQUINE PHOSPHATE. [Suspect]
     Active Substance: CHLOROQUINE PHOSPHATE
     Dosage: UNK
     Route: 048
  2. CHLOROQUINE PHOSPHATE. [Suspect]
     Active Substance: CHLOROQUINE PHOSPHATE
     Indication: MALARIA
     Dosage: TWO TABLETS
     Route: 048
  3. CHLOROQUIN PHOSPHATE [Concomitant]
     Indication: MALARIA
     Dosage: UNK

REACTIONS (4)
  - Muscle contractions involuntary [Recovered/Resolved]
  - Salivary hypersecretion [Recovered/Resolved]
  - Dyskinesia [Recovered/Resolved]
  - Dysphagia [Recovered/Resolved]
